FAERS Safety Report 4987193-2 (Version None)
Quarter: 2006Q2

REPORT INFORMATION
  Report Type: 
  Country: None (occurrence: None)
  Receive Date: 20060501
  Receipt Date: 20060313
  Transmission Date: 20061013
  Serious: Yes (Hospitalization)
  Sender: FDA-Public Use
  Company Number: JP-ROCHE-440344

PATIENT
  Age: 12 Year
  Sex: Female
  Weight: 35 kg

DRUGS (2)
  1. TAMIFLU [Suspect]
     Route: 048
     Dates: start: 20060121, end: 20060121
  2. CALONAL [Concomitant]
     Route: 048
     Dates: start: 20060121, end: 20060121

REACTIONS (10)
  - CULTURE STOOL POSITIVE [None]
  - DIZZINESS [None]
  - DRUG HYPERSENSITIVITY [None]
  - ENTEROCOLITIS HAEMORRHAGIC [None]
  - GASTROENTERITIS BACTERIAL [None]
  - NAUSEA [None]
  - NEUTROPHIL COUNT INCREASED [None]
  - PLATELET COUNT INCREASED [None]
  - STAPHYLOCOCCAL INFECTION [None]
  - TYPE IV HYPERSENSITIVITY REACTION [None]
